FAERS Safety Report 6951025-3 (Version None)
Quarter: 2010Q3

REPORT INFORMATION
  Report Type: 
  Country: None (occurrence: None)
  Receive Date: 20100828
  Receipt Date: 20100305
  Transmission Date: 20110219
  Serious: No
  Sender: FDA-Public Use
  Company Number: US-ABBOTT-10P-163-0631459-00

PATIENT
  Sex: Male
  Weight: 85.352 kg

DRUGS (6)
  1. NIASPAN [Suspect]
     Indication: BLOOD CHOLESTEROL INCREASED
     Route: 048
     Dates: start: 20091101
  2. NIASPAN [Suspect]
     Route: 048
  3. COZAAR [Concomitant]
     Indication: CARDIAC DISORDER
     Route: 048
  4. ASPIRIN [Concomitant]
     Indication: PROPHYLAXIS
     Route: 048
  5. PLAVIX [Concomitant]
     Indication: CARDIAC DISORDER
     Route: 048
  6. ZOCOR [Concomitant]
     Indication: BLOOD CHOLESTEROL INCREASED
     Route: 048

REACTIONS (3)
  - BACK PAIN [None]
  - DIZZINESS [None]
  - FLUSHING [None]
